FAERS Safety Report 6603042-0 (Version None)
Quarter: 2010Q1

REPORT INFORMATION
  Report Type: 
  Country: None (occurrence: None)
  Receive Date: 20100226
  Receipt Date: 20100121
  Transmission Date: 20100710
  Serious: Yes (Hospitalization, Other)
  Sender: FDA-Public Use
  Company Number: US-ELI_LILLY_AND_COMPANY-US201001004389

PATIENT
  Sex: Female

DRUGS (9)
  1. BYETTA [Suspect]
     Indication: TYPE 2 DIABETES MELLITUS
     Dosage: 5 UG, 2/D
     Route: 058
     Dates: start: 20080915, end: 20091224
  2. BYETTA [Suspect]
     Dosage: 5 UG, 2/D
     Route: 058
     Dates: start: 20091228, end: 20100112
  3. METFORMIN HCL [Concomitant]
     Dosage: UNK, UNKNOWN
     Route: 065
  4. ZOCOR [Concomitant]
     Dosage: 20 MG, DAILY (1/D)
  5. ERGOCALCIFEROL [Concomitant]
     Dosage: UNK, UNKNOWN
  6. LISINOPRIL [Concomitant]
     Dosage: 10 MG, DAILY (1/D)
     Route: 048
  7. FISH OIL [Concomitant]
     Dosage: UNK, UNKNOWN
     Route: 065
  8. SERTRALIN [Concomitant]
     Dosage: UNK, UNKNOWN
     Route: 065
  9. CINNAMON [Concomitant]
     Dosage: UNK, UNKNOWN
     Route: 065

REACTIONS (2)
  - PANCREATITIS [None]
  - WEIGHT DECREASED [None]
